FAERS Safety Report 8915862 (Version 1)
Quarter: 2012Q4

REPORT INFORMATION
  Report Type: 
  Country: US (occurrence: US)
  Receive Date: 20121119
  Receipt Date: 20121119
  Transmission Date: 20130627
  Serious: Yes (Other)
  Sender: FDA-Public Use
  Company Number: US-PFIZER INC-2012287445

PATIENT
  Age: 72 Year
  Sex: Male
  Weight: 99.77 kg

DRUGS (9)
  1. NEURONTIN [Suspect]
     Indication: KNEE PAIN
     Dosage: 600 mg, UNK
     Route: 048
     Dates: start: 2002
  2. NEURONTIN [Suspect]
     Indication: PAINFUL FEET
     Dosage: UNK
     Route: 048
  3. NEURONTIN [Suspect]
     Dosage: 800 mg, UNK
     Route: 048
  4. NEURONTIN [Suspect]
     Dosage: 1200 mg, 3x/day
     Route: 048
     Dates: end: 2012
  5. NEURONTIN [Suspect]
     Dosage: 1800mg, daily
     Route: 048
     Dates: start: 2012, end: 20120915
  6. GLYBURIDE [Concomitant]
     Indication: DIABETES
     Dosage: 5 mg, UNK
  7. METFORMIN [Concomitant]
     Indication: DIABETES
     Dosage: 500 mg, UNK
  8. LISINOPRIL [Concomitant]
     Indication: BLOOD PRESSURE HIGH
     Dosage: UNK
  9. SIMVASTATIN [Concomitant]
     Indication: HIGH CHOLESTEROL
     Dosage: 40 mg, UNK

REACTIONS (7)
  - Anal injury [Unknown]
  - Penis injury [Unknown]
  - Drug ineffective [Unknown]
  - Penile pain [Unknown]
  - Burning sensation [Unknown]
  - Proctalgia [Unknown]
  - Anorectal discomfort [Unknown]
